FAERS Safety Report 22262308 (Version 19)
Quarter: 2024Q3

REPORT INFORMATION
  Report Type: Spontaneous
  Country: CA (occurrence: CA)
  Receive Date: 20230428
  Receipt Date: 20240720
  Transmission Date: 20241016
  Serious: Yes (Hospitalization, Other)
  Sender: CELLTRION
  Company Number: CA-CELLTRION INC.-2023CA007455

PATIENT

DRUGS (35)
  1. INFLECTRA [Suspect]
     Active Substance: INFLIXIMAB-DYYB
     Indication: Crohn^s disease
     Dosage: 10 MG/KG, FIXED DOSE 800 MG WEEK 0 (RECEIVED AT HOSPITAL), 2 ,6 THEN EVERY 8 WEEKS
     Route: 042
     Dates: start: 20230402
  2. INFLECTRA [Suspect]
     Active Substance: INFLIXIMAB-DYYB
     Dosage: 800 MG, ON WEEK 2, (10MG/KG) WEEK 0 RECEIVED AT HOSPITAL WEEK 2, 6 THEN Q 8 WEEK
     Route: 042
     Dates: start: 20230419
  3. INFLECTRA [Suspect]
     Active Substance: INFLIXIMAB-DYYB
     Dosage: 800 MG, WEEK 0, 2 ,6 THEN EVERY 8 WEEKS
     Route: 042
     Dates: start: 20230516
  4. INFLECTRA [Suspect]
     Active Substance: INFLIXIMAB-DYYB
     Dosage: 800 MG, EVERY 8 WEEKS
     Route: 042
     Dates: start: 20230714
  5. INFLECTRA [Suspect]
     Active Substance: INFLIXIMAB-DYYB
     Dosage: 800 MG, FIXED DOSE, WK 0 (AT HOSPITAL) 2 ,6, AFTER 8 WKS + 3 DAYS (PRES Q 8 WKS)
     Route: 042
     Dates: start: 20230911
  6. INFLECTRA [Suspect]
     Active Substance: INFLIXIMAB-DYYB
     Dosage: 10 MG/KG (849 MG), AFTER 4 WEEKS AND 4 DAYS (PRESCRIBED EVERY 4 WEEKS)
     Route: 042
     Dates: start: 20231013
  7. INFLECTRA [Suspect]
     Active Substance: INFLIXIMAB-DYYB
     Dosage: 10 MG/KG (850 MG), AFTER 4 WEEKS AND 3 DAYS (PRESCRIBED EVERY 4 WEEKS)
     Route: 042
     Dates: start: 20231113
  8. INFLECTRA [Suspect]
     Active Substance: INFLIXIMAB-DYYB
     Dosage: 10 MG/KG (850 MG), AFTER 4 WEEKS AND 3 DAYS (PRESCRIBED EVERY 4 WEEKS)
     Route: 042
     Dates: start: 20231113
  9. INFLECTRA [Suspect]
     Active Substance: INFLIXIMAB-DYYB
     Dosage: 10 MG/KG (850 MG), AFTER 4 WEEKS AND 3 DAYS (PRESCRIBED EVERY 4 WEEKS)
     Route: 042
     Dates: start: 20231113
  10. INFLECTRA [Suspect]
     Active Substance: INFLIXIMAB-DYYB
     Dosage: 10 MG/KG (845 MG), EVERY 4 WEEKS
     Route: 042
     Dates: start: 20231208
  11. INFLECTRA [Suspect]
     Active Substance: INFLIXIMAB-DYYB
     Dosage: 10 MG/KG, EVERY 4 WEEKS
     Route: 042
     Dates: start: 20240108
  12. INFLECTRA [Suspect]
     Active Substance: INFLIXIMAB-DYYB
     Dosage: 10 MG/KG, EVERY 4 WEEKS
     Route: 042
     Dates: start: 20240108
  13. INFLECTRA [Suspect]
     Active Substance: INFLIXIMAB-DYYB
     Dosage: 10 MG/KG (840 MG), EVERY 4 WEEKS)
     Route: 042
     Dates: start: 20240212
  14. INFLECTRA [Suspect]
     Active Substance: INFLIXIMAB-DYYB
     Dosage: 10 MG/KG (830 MG), EVERY 4 WEEKS
     Route: 042
     Dates: start: 20240312
  15. INFLECTRA [Suspect]
     Active Substance: INFLIXIMAB-DYYB
     Dosage: 10 MG/KG, EVERY 4 WEEKS
     Route: 042
     Dates: start: 20240409
  16. INFLECTRA [Suspect]
     Active Substance: INFLIXIMAB-DYYB
     Dosage: 10 MG/KG, (845 MG), AFTER 4 WEEKS AND 2 DAYS (PRESCRIBED EVERY 4 WEEKS)
     Route: 042
     Dates: start: 20240509
  17. INFLECTRA [Suspect]
     Active Substance: INFLIXIMAB-DYYB
     Dosage: 10 MG/KG, AFTER 3 WEEKS AND 5 DAYS (PRESCRIBED EVERY 4 WEEKS)
     Route: 042
     Dates: start: 20240604
  18. INFLECTRA [Suspect]
     Active Substance: INFLIXIMAB-DYYB
     Dosage: 10MG/KG, EVERY 4 WEEKS
     Route: 042
     Dates: start: 20240704
  19. ALLOPURINOL [Concomitant]
     Active Substance: ALLOPURINOL
     Dosage: UNK
  20. APIXABAN [Concomitant]
     Active Substance: APIXABAN
     Dosage: UNK
  21. ATIVAN [Concomitant]
     Active Substance: LORAZEPAM
     Dosage: UNK
  22. CALCIUM [Concomitant]
     Active Substance: CALCIUM
     Dosage: DECREASE DOSE UNTIL END MAY2023
     Dates: start: 202304
  23. ENSURE COMPLETE [Concomitant]
     Dosage: UNK, 3X/DAY, TAKES 3 ENSURE A DAY
  24. ENTYVIO [Concomitant]
     Active Substance: VEDOLIZUMAB
     Dosage: EVERY 4 WEEKS
     Dates: start: 202204
  25. FINASTERIDE [Concomitant]
     Active Substance: FINASTERIDE
     Dosage: UNK
  26. MORNIFLUMATE [Concomitant]
     Active Substance: MORNIFLUMATE
     Dosage: UNK
  27. LASIX [Concomitant]
     Active Substance: FUROSEMIDE
     Dosage: UNK
  28. LOPERAMIDE [Concomitant]
     Active Substance: LOPERAMIDE
     Dosage: UNK
  29. M D1000 [Concomitant]
     Dosage: UNK
  30. PREDNISONE [Concomitant]
     Active Substance: PREDNISONE
     Dosage: DECREASE DOSE UNTIL END MAY2023
     Dates: start: 202304
  31. PREDNISONE [Concomitant]
     Active Substance: PREDNISONE
     Dosage: 1 DF
  32. RISEDRONATE SODIUM [Concomitant]
     Active Substance: RISEDRONATE SODIUM
     Dosage: UNK
  33. ROSUVASTATIN [Concomitant]
     Active Substance: ROSUVASTATIN
     Dosage: UNK
  34. SOLU-MEDROL [Concomitant]
     Active Substance: METHYLPREDNISOLONE SODIUM SUCCINATE
     Dosage: UNK
  35. SPIRONOLACTONE [Concomitant]
     Active Substance: SPIRONOLACTONE
     Dosage: UNK

REACTIONS (17)
  - Cardiac failure [Unknown]
  - Ostomy bag placement [Unknown]
  - Condition aggravated [Recovered/Resolved]
  - Anal fissure [Recovered/Resolved]
  - Poor quality sleep [Not Recovered/Not Resolved]
  - Oedema peripheral [Unknown]
  - Confusional state [Not Recovered/Not Resolved]
  - Nasopharyngitis [Not Recovered/Not Resolved]
  - Arthralgia [Recovered/Resolved]
  - Abdominal discomfort [Unknown]
  - Anaemia [Not Recovered/Not Resolved]
  - Disease recurrence [Not Recovered/Not Resolved]
  - Chills [Not Recovered/Not Resolved]
  - Body temperature increased [Not Recovered/Not Resolved]
  - Off label use [Unknown]
  - Off label use [Unknown]
  - Inappropriate schedule of product administration [Unknown]

NARRATIVE: CASE EVENT DATE: 20230101
